FAERS Safety Report 6641548-9 (Version None)
Quarter: 2010Q1

REPORT INFORMATION
  Report Type: 
  Country: None (occurrence: None)
  Receive Date: 20100317
  Receipt Date: 20100317
  Transmission Date: 20100710
  Serious: Yes (Hospitalization)
  Sender: FDA-Public Use
  Company Number: None

PATIENT
  Age: 46 Year
  Sex: Male
  Weight: 122 kg

DRUGS (14)
  1. MYCOPHENOLATE MOFETIL [Suspect]
     Indication: PROPHYLAXIS
     Dosage: 500 MG Q12O PO OUTPATIENT DOSE
     Route: 048
  2. MYCOPHENOLATE MOFETIL [Suspect]
     Indication: TRANSPLANT REJECTION
     Dosage: 500 MG Q12O PO OUTPATIENT DOSE
     Route: 048
  3. M.V.I. [Concomitant]
  4. LANTUS [Concomitant]
  5. SIMVASTATIN [Concomitant]
  6. DOCUSATE [Concomitant]
  7. COTRIM [Concomitant]
  8. NYSTATIN [Concomitant]
  9. RANITIDINE [Concomitant]
  10. VALACYCLOVIR [Concomitant]
  11. PREDNISONE TAB [Concomitant]
  12. TACROLIMUS [Concomitant]
  13. METOPROLOL TARTRATE [Concomitant]
  14. BRIMONIDINE [Concomitant]

REACTIONS (1)
  - INCORRECT DOSE ADMINISTERED [None]
